FAERS Safety Report 9200755 (Version 1)
Quarter: 2013Q1

REPORT INFORMATION
  Report Type: Spontaneous
  Country: US (occurrence: None)
  Receive Date: 20130328
  Receipt Date: 20130328
  Transmission Date: 20140127
  Serious: Yes (Hospitalization)
  Sender: FDA-Public Use
  Company Number: None

PATIENT
  Age: 90 Year
  Sex: Male
  Weight: 65 kg

DRUGS (12)
  1. WARFARIN [Suspect]
     Indication: ATRIAL FIBRILLATION
     Dosage: 5 MG ALTERNATE WITH 7.5 MG 5X/WK AND 2X/WK PO ?PRIOR ADMISSION
     Route: 048
  2. FUROSEMIDE [Concomitant]
  3. LISINOPRIL [Concomitant]
  4. CYANOCOBALAMIN [Concomitant]
  5. PREDNISONE [Concomitant]
  6. MYCOPHENOLATE [Concomitant]
  7. ASPIRIN [Concomitant]
  8. TAMSULOSIN [Concomitant]
  9. FERROUS SULFATE [Concomitant]
  10. MULTIVITAMIN [Concomitant]
  11. CALCIUMCARBONATE [Concomitant]
  12. SULFAMETHOXAZOLE/TRIMETHOPRIM [Concomitant]

REACTIONS (1)
  - Subdural haematoma [None]
